FAERS Safety Report 9658103 (Version 2)
Quarter: 2014Q1

REPORT INFORMATION
  Report Type: Spontaneous
  Country: US (occurrence: US)
  Receive Date: 20131030
  Receipt Date: 20140221
  Transmission Date: 20141002
  Serious: No
  Sender: FDA-Public Use
  Company Number: US-009507513-1310USA013470

PATIENT
  Sex: Female
  Weight: 90.7 kg

DRUGS (9)
  1. OXYTROL FOR WOMEN [Suspect]
     Indication: HYPERTONIC BLADDER
     Dosage: 1 DF, Q4D
     Route: 062
     Dates: start: 20130920, end: 20131024
  2. NORCO [Concomitant]
     Indication: PAIN
     Dosage: UNK, UNKNOWN
  3. NORCO [Concomitant]
     Indication: ARTHRITIS
  4. FENTANYL [Concomitant]
     Indication: PAIN
     Dosage: UNK, UNKNOWN
  5. FENTANYL [Concomitant]
     Indication: ARTHRITIS
  6. ESTRADIOL [Concomitant]
     Indication: MENOPAUSE
     Dosage: 2 MG, QD
  7. CENTURY SENIOR VITAMINS [Concomitant]
     Indication: PRODUCT USED FOR UNKNOWN INDICATION
     Dosage: UNK, QD
  8. ASPIRIN [Concomitant]
     Indication: PRODUCT USED FOR UNKNOWN INDICATION
     Dosage: 81 MG, BID
  9. SUDAFED [Concomitant]
     Indication: ALLERGIC SINUSITIS
     Dosage: UNK, QD

REACTIONS (5)
  - Pain [Recovered/Resolved]
  - Discomfort [Recovered/Resolved]
  - Pruritus [Recovered/Resolved]
  - Wrong technique in drug usage process [Unknown]
  - Drug effect decreased [Unknown]
